FAERS Safety Report 7991359-7 (Version None)
Quarter: 2011Q4

REPORT INFORMATION
  Report Type: 
  Country: None (occurrence: None)
  Receive Date: 20111219
  Receipt Date: 20111213
  Transmission Date: 20120403
  Serious: Yes (Hospitalization)
  Sender: FDA-Public Use
  Company Number: FR-EISAI INC-E2090-01903-SPO-FR

PATIENT
  Age: 17 Year
  Sex: Female

DRUGS (5)
  1. ZONEGRAN [Suspect]
     Route: 048
     Dates: start: 20101212, end: 20110120
  2. LAMICTAL [Suspect]
     Route: 048
     Dates: start: 20090101, end: 20110118
  3. LAMICTAL [Suspect]
     Route: 048
     Dates: start: 20110119, end: 20110121
  4. LEVOTHYROXINE SODIUM [Concomitant]
     Dates: start: 20090101
  5. LAMICTAL [Suspect]
     Dosage: UNKNOWN
     Route: 048
     Dates: start: 20110123

REACTIONS (1)
  - TRANSAMINASES INCREASED [None]
